FAERS Safety Report 17400759 (Version 1)
Quarter: 2020Q1

REPORT INFORMATION
  Report Type: Spontaneous
  Country: CN (occurrence: CN)
  Receive Date: 20200211
  Receipt Date: 20200211
  Transmission Date: 20200409
  Serious: Yes (Hospitalization)
  Sender: FDA-Public Use
  Company Number: CN-STRIDES ARCOLAB LIMITED-2020SP001187

PATIENT
  Age: 17 Year
  Sex: Female
  Weight: 40 kg

DRUGS (7)
  1. VANCOMYCIN [Suspect]
     Active Substance: VANCOMYCIN
     Indication: CENTRAL NERVOUS SYSTEM INFECTION
  2. CEFAZOLIN [Suspect]
     Active Substance: CEFAZOLIN
     Indication: ANTIBIOTIC PROPHYLAXIS
     Dosage: 2 GRAM
     Route: 042
     Dates: start: 20170927, end: 20170929
  3. VANCOMYCIN [Suspect]
     Active Substance: VANCOMYCIN
     Indication: ANTIBIOTIC PROPHYLAXIS
     Dosage: 1 GRAM, BID, STARTED ON DAY 2 AFTER SURGERY
     Route: 065
     Dates: start: 20170929, end: 201710
  4. CEFAZOLIN [Suspect]
     Active Substance: CEFAZOLIN
     Indication: TUMOUR EXCISION
  5. CEFAZOLIN [Suspect]
     Active Substance: CEFAZOLIN
     Indication: VENTRICULAR DRAINAGE
  6. CEFTRIAXONE. [Suspect]
     Active Substance: CEFTRIAXONE
     Indication: CENTRAL NERVOUS SYSTEM INFECTION
  7. CEFTRIAXONE. [Suspect]
     Active Substance: CEFTRIAXONE
     Indication: ANTIBIOTIC PROPHYLAXIS
     Dosage: 2 GRAM DAILY, STARTED ON DAY 6 AFTER SURGERY
     Route: 065
     Dates: start: 20171003, end: 201710

REACTIONS (8)
  - Nausea [Recovered/Resolved]
  - Depressed level of consciousness [Recovered/Resolved]
  - Vomiting [Recovered/Resolved]
  - Meningitis bacterial [Recovered/Resolved]
  - Enterobacter infection [Recovered/Resolved]
  - Apathy [Recovered/Resolved]
  - Lethargy [Recovered/Resolved]
  - Pyrexia [Recovered/Resolved]

NARRATIVE: CASE EVENT DATE: 201710
